FAERS Safety Report 24646107 (Version 1)
Quarter: 2024Q4

REPORT INFORMATION
  Report Type: Spontaneous
  Country: US (occurrence: US)
  Receive Date: 20241121
  Receipt Date: 20241121
  Transmission Date: 20250115
  Serious: No
  Sender: COLLEGIUM PHARMACEUTICAL
  Company Number: US-COLLEGIUM PHARMACEUTICAL, INC.-20240200148

PATIENT
  Age: 56 Year
  Sex: Female
  Weight: 72.562 kg

DRUGS (2)
  1. BELBUCA [Suspect]
     Active Substance: BUPRENORPHINE HYDROCHLORIDE
     Indication: Back pain
     Dosage: 75 MICROGRAM, ONE TIME DAILY AT NIGHTTIME
     Route: 002
     Dates: start: 20240221, end: 20240228
  2. GABAPENTIN [Concomitant]
     Active Substance: GABAPENTIN
     Indication: Radiculopathy
     Dosage: UNK, UNKNOWN
     Route: 065

REACTIONS (1)
  - Therapeutic response increased [Not Recovered/Not Resolved]

NARRATIVE: CASE EVENT DATE: 20240221
